FAERS Safety Report 22081943 (Version 2)
Quarter: 2023Q1

REPORT INFORMATION
  Report Type: Spontaneous
  Country: US (occurrence: US)
  Receive Date: 20230310
  Receipt Date: 20230326
  Transmission Date: 20230417
  Serious: No
  Sender: FDA-Public Use
  Company Number: US-BRISTOL-MYERS SQUIBB COMPANY-2023-035359

PATIENT
  Age: 76 Year
  Sex: Female

DRUGS (1)
  1. SOTYKTU [Suspect]
     Active Substance: DEUCRAVACITINIB
     Indication: Psoriasis
     Dosage: DOSE : 6 MG;     FREQ : ONCE DAILY
     Route: 048
     Dates: start: 20230302, end: 20230307

REACTIONS (7)
  - Rash [Unknown]
  - Pruritus [Unknown]
  - Paraesthesia oral [Unknown]
  - Gastrointestinal disorder [Unknown]
  - Burning sensation [Unknown]
  - Dyspnoea [Unknown]
  - Mouth swelling [Unknown]

NARRATIVE: CASE EVENT DATE: 20230307
